FAERS Safety Report 19496152 (Version 1)
Quarter: 2021Q3

REPORT INFORMATION
  Report Type: Spontaneous
  Country: US (occurrence: US)
  Receive Date: 20210702
  Receipt Date: 20210702
  Transmission Date: 20211014
  Serious: Yes (Hospitalization)
  Sender: FDA-Public Use
  Company Number: None

PATIENT
  Sex: Male

DRUGS (10)
  1. METFORMIN [Concomitant]
     Active Substance: METFORMIN HYDROCHLORIDE
  2. LISINOPRIL. [Concomitant]
     Active Substance: LISINOPRIL
  3. MEKINIST [Suspect]
     Active Substance: TRAMETINIB DIMETHYL SULFOXIDE
     Indication: NEOPLASM MALIGNANT
     Route: 048
     Dates: start: 20191206
  4. NOVOLOG [Concomitant]
     Active Substance: INSULIN ASPART
  5. PAROXETINE. [Concomitant]
     Active Substance: PAROXETINE
  6. BASAGLAR [Concomitant]
     Active Substance: INSULIN GLARGINE
  7. ELIQUIS [Concomitant]
     Active Substance: APIXABAN
  8. TAFINLAR [Suspect]
     Active Substance: DABRAFENIB MESYLATE
     Indication: NEOPLASM MALIGNANT
     Route: 048
     Dates: start: 20191205
  9. MIRTAZAPINE. [Concomitant]
     Active Substance: MIRTAZAPINE
  10. PANTOPRZOLE [Concomitant]

REACTIONS (2)
  - Therapy interrupted [None]
  - Brain operation [None]
